FAERS Safety Report 20952003 (Version 1)
Quarter: 2022Q2

REPORT INFORMATION
  Report Type: Spontaneous
  Country: US (occurrence: None)
  Receive Date: 20220611
  Receipt Date: 20220611
  Transmission Date: 20220720
  Serious: Yes (Other)
  Sender: FDA-Public Use
  Company Number: None

PATIENT
  Age: 13 Month
  Sex: Female
  Weight: 10.8 kg

DRUGS (2)
  1. MONTELUKAST SODIUM [Suspect]
     Active Substance: MONTELUKAST SODIUM
     Indication: Multiple allergies
     Dosage: FREQUENCY : AT BEDTIME;?
     Route: 048
     Dates: start: 20220609, end: 20220609
  2. CLARITIN [Concomitant]
     Active Substance: LORATADINE

REACTIONS (10)
  - Screaming [None]
  - Crying [None]
  - Aggression [None]
  - Nightmare [None]
  - Disorientation [None]
  - Irritability [None]
  - Restlessness [None]
  - Dyskinesia [None]
  - Therapy cessation [None]
  - Product dispensing issue [None]

NARRATIVE: CASE EVENT DATE: 20220609
